FAERS Safety Report 4511923-7 (Version None)
Quarter: 2004Q4

REPORT INFORMATION
  Report Type: 
  Country: None (occurrence: None)
  Receive Date: 20041129
  Receipt Date: 20041117
  Transmission Date: 20050328
  Serious: Yes (Hospitalization)
  Sender: FDA-Public Use
  Company Number: US-MERCK-0411USA03105

PATIENT
  Sex: Female

DRUGS (1)
  1. VIOXX [Suspect]
     Indication: ARTHRITIS
     Route: 048

REACTIONS (6)
  - ABNORMAL CLOTTING FACTOR [None]
  - ADVERSE EVENT [None]
  - ARRHYTHMIA [None]
  - COAGULOPATHY [None]
  - HYPERTENSION [None]
  - PAIN [None]
